FAERS Safety Report 5292460-1 (Version None)
Quarter: 2007Q2

REPORT INFORMATION
  Report Type: 
  Country: None (occurrence: None)
  Receive Date: 20070403
  Receipt Date: 20070326
  Transmission Date: 20071010
  Serious: Yes (Hospitalization)
  Sender: FDA-Public Use
  Company Number: E2020-00901-SPO-FR

PATIENT
  Age: 80 Year
  Sex: Female

DRUGS (11)
  1. ARICEPT [Suspect]
     Indication: DEMENTIA ALZHEIMER'S TYPE
     Dosage: 10 MG, 1 IN 1 D, ORAL
     Route: 048
     Dates: start: 20060615, end: 20061216
  2. RISPERDAL [Suspect]
     Indication: DEMENTIA ALZHEIMER'S TYPE
     Dosage: 0.5 MG, ORAL
     Route: 048
     Dates: start: 20060615, end: 20061216
  3. DIANTALVIC (DI-GESIC) [Suspect]
     Indication: DRUG USE FOR UNKNOWN INDICATION
     Dosage: ORAL
     Route: 048
     Dates: start: 20061129, end: 20061216
  4. CHONDROSULF (CHONDROITIN SULFATE SODIUM) [Suspect]
     Indication: DRUG USE FOR UNKNOWN INDICATION
     Dosage: ORAL
     Route: 048
     Dates: start: 20060615, end: 20061216
  5. LOVENOX [Suspect]
     Indication: DRUG USE FOR UNKNOWN INDICATION
     Dosage: 25 MG, ORAL
     Route: 048
     Dates: start: 20061129, end: 20061216
  6. DEXTRARINE PHENYLBUTAZONE (DEXTRARINEPHENYLBUTAZONE) [Suspect]
     Indication: DRUG USE FOR UNKNOWN INDICATION
     Dates: start: 20061015, end: 20061216
  7. ACUPAN [Suspect]
     Indication: DRUG USE FOR UNKNOWN INDICATION
     Dosage: INTRAVENOUS (NOT OTHERWISE SPECIFIED)
     Route: 042
     Dates: start: 20061130, end: 20061216
  8. PANTOPRAZOLE SODIUM [Suspect]
     Indication: DRUG USE FOR UNKNOWN INDICATION
     Dosage: ORAL
     Route: 048
     Dates: start: 20061129, end: 20061216
  9. ZOFRAN [Concomitant]
  10. SUFENTA [Concomitant]
  11. DIPRIVAN [Concomitant]

REACTIONS (4)
  - AGRANULOCYTOSIS [None]
  - INFECTION [None]
  - PYREXIA [None]
  - RESPIRATORY DISORDER [None]
